FAERS Safety Report 9908457 (Version 3)
Quarter: 2014Q2

REPORT INFORMATION
  Report Type: Report from Study
  Country: CA (occurrence: CA)
  Receive Date: 20140219
  Receipt Date: 20140616
  Transmission Date: 20141212
  Serious: No
  Sender: FDA-Public Use
  Company Number: CA-JNJFOC-20140110127

PATIENT
  Age: 55 Year
  Sex: Female

DRUGS (1)
  1. STELARA [Suspect]
     Indication: PSORIASIS
     Route: 058
     Dates: start: 20100915, end: 20140414

REACTIONS (3)
  - Actinic keratosis [Unknown]
  - Pneumonia [Unknown]
  - Pneumonia [Unknown]
